FAERS Safety Report 23037310 (Version 1)
Quarter: 2023Q4

REPORT INFORMATION
  Report Type: Spontaneous
  Country: AU (occurrence: AU)
  Receive Date: 20231006
  Receipt Date: 20231006
  Transmission Date: 20240109
  Serious: Yes (Other)
  Sender: FDA-Public Use
  Company Number: AU-AstraZeneca-2023-28971

PATIENT

DRUGS (6)
  1. GOSERELIN [Suspect]
     Active Substance: GOSERELIN
     Indication: Prostate cancer
     Dosage: 10.8MG UNKNOWN
     Route: 058
  2. GOSERELIN [Suspect]
     Active Substance: GOSERELIN
     Dosage: 10.8MG UNKNOWN
     Route: 058
     Dates: start: 20230206
  3. GOSERELIN [Suspect]
     Active Substance: GOSERELIN
     Dosage: 10.8MG UNKNOWN
     Route: 058
     Dates: start: 20230515
  4. GOSERELIN [Suspect]
     Active Substance: GOSERELIN
     Dosage: 10.8MG UNKNOWN
     Route: 058
     Dates: start: 20230828
  5. ZOLADEX [Suspect]
     Active Substance: GOSERELIN ACETATE
     Indication: Prostate cancer
     Dosage: UNK
     Route: 065
  6. BICALUTAMIDE [Concomitant]
     Active Substance: BICALUTAMIDE
     Indication: Product used for unknown indication
     Dosage: UNK
     Route: 065
     Dates: start: 202308

REACTIONS (1)
  - Malignant neoplasm progression [Unknown]
